FAERS Safety Report 17612522 (Version 12)
Quarter: 2021Q1

REPORT INFORMATION
  Report Type: Report from Study
  Country: JP (occurrence: JP)
  Receive Date: 20200401
  Receipt Date: 20210114
  Transmission Date: 20210419
  Serious: Yes (Hospitalization, Disabling, Other)
  Sender: FDA-Public Use
  Company Number: JP-BRISTOL-MYERS SQUIBB COMPANY-BMS-2019-085433

PATIENT
  Age: 67 Year
  Sex: Male
  Weight: 67 kg

DRUGS (3)
  1. STEROIDS [Concomitant]
     Active Substance: UNSPECIFIED INGREDIENT
     Indication: MYOCARDITIS
     Dosage: UNK
     Route: 065
  2. YERVOY [Suspect]
     Active Substance: IPILIMUMAB
     Indication: METASTATIC RENAL CELL CARCINOMA
     Dosage: 1 MILLIGRAM/KILOGRAM
     Route: 041
     Dates: start: 20190807, end: 20190807
  3. NIVOLUMAB [Suspect]
     Active Substance: NIVOLUMAB
     Indication: METASTATIC RENAL CELL CARCINOMA
     Dosage: 240 MILLIGRAM
     Route: 041
     Dates: start: 20190807, end: 20190807

REACTIONS (10)
  - Pyrexia [Recovering/Resolving]
  - Hepatic function abnormal [Recovering/Resolving]
  - Cardiac failure chronic [Unknown]
  - Immune-mediated myocarditis [Recovered/Resolved with Sequelae]
  - Hypopituitarism [Recovered/Resolved]
  - Lung disorder [Unknown]
  - Dry eye [Unknown]
  - Rhabdomyolysis [Recovered/Resolved]
  - Atrial fibrillation [Unknown]
  - Myositis [Unknown]

NARRATIVE: CASE EVENT DATE: 20190814
